FAERS Safety Report 5507934-5 (Version None)
Quarter: 2007Q4

REPORT INFORMATION
  Report Type: 
  Country: None (occurrence: None)
  Receive Date: 20071106
  Receipt Date: 20071026
  Transmission Date: 20080405
  Serious: Yes (Other)
  Sender: FDA-Public Use
  Company Number: US-PFIZER INC-2006143056

PATIENT
  Sex: Female

DRUGS (5)
  1. BEXTRA [Suspect]
     Indication: PAIN IN EXTREMITY
  2. MARCAINE [Concomitant]
  3. ALL OTHER THERAPEUTIC PRODUCTS [Concomitant]
  4. MONTELUKAST SODIUM [Concomitant]
     Route: 048
     Dates: start: 20020911
  5. PRILOSEC [Concomitant]
     Route: 048
     Dates: start: 20020911

REACTIONS (1)
  - STEVENS-JOHNSON SYNDROME [None]
